FAERS Safety Report 20135686 (Version 1)
Quarter: 2021Q4

REPORT INFORMATION
  Report Type: Spontaneous
  Country: US (occurrence: US)
  Receive Date: 20211201
  Receipt Date: 20211201
  Transmission Date: 20220304
  Serious: No
  Sender: FDA-Public Use
  Company Number: US-PFIZER INC-2021612325

PATIENT
  Age: 34 Year
  Sex: Female

DRUGS (4)
  1. XELJANZ [Suspect]
     Active Substance: TOFACITINIB CITRATE
     Indication: Colitis ulcerative
     Dosage: 10 MG, 2X/DAY
     Route: 048
     Dates: start: 20210329
  2. PREDNISONE [Concomitant]
     Active Substance: PREDNISONE
     Dosage: 10 MG
     Route: 048
  3. ANUSOL HC [Concomitant]
     Active Substance: HYDROCORTISONE
     Dosage: 25 MG
     Route: 054
  4. UCERIS [Concomitant]
     Active Substance: BUDESONIDE
     Dosage: 2 MG

REACTIONS (1)
  - Headache [Not Recovered/Not Resolved]
